FAERS Safety Report 20015811 (Version 1)
Quarter: 2021Q4

REPORT INFORMATION
  Report Type: Spontaneous
  Country: US (occurrence: None)
  Receive Date: 20211101
  Receipt Date: 20211101
  Transmission Date: 20220303
  Serious: No
  Sender: FDA-Public Use
  Company Number: None

PATIENT
  Age: 64 Year
  Sex: Male
  Weight: 81 kg

DRUGS (1)
  1. SEMAGLUTIDE [Suspect]
     Active Substance: SEMAGLUTIDE
     Dates: start: 20210630, end: 20210902

REACTIONS (6)
  - Lactic acidosis [None]
  - Diabetic ketoacidosis [None]
  - Rash [None]
  - Constipation [None]
  - Gastrooesophageal reflux disease [None]
  - Decreased appetite [None]

NARRATIVE: CASE EVENT DATE: 20210908
